FAERS Safety Report 13696279 (Version 4)
Quarter: 2017Q4

REPORT INFORMATION
  Report Type: Report from Study
  Country: CO (occurrence: CO)
  Receive Date: 20170628
  Receipt Date: 20171009
  Transmission Date: 20180320
  Serious: Yes (Death, Hospitalization, Other)
  Sender: FDA-Public Use
  Company Number: CO-AMGEN-COLSL2017061968

PATIENT
  Age: 54 Year
  Sex: Female

DRUGS (2)
  1. KYPROLIS [Suspect]
     Active Substance: CARFILZOMIB
     Indication: PLASMA CELL MYELOMA
     Dosage: 47 MG, QWK
     Route: 042
     Dates: start: 20160923
  2. KYPROLIS [Suspect]
     Active Substance: CARFILZOMIB
     Dosage: 57 MG, OTHER
     Route: 042
     Dates: end: 20170725

REACTIONS (7)
  - Epistaxis [Not Recovered/Not Resolved]
  - Off label use [Unknown]
  - Mouth haemorrhage [Not Recovered/Not Resolved]
  - Haemoglobin decreased [Not Recovered/Not Resolved]
  - Cellulitis [Not Recovered/Not Resolved]
  - Disease complication [Unknown]
  - Death [Fatal]

NARRATIVE: CASE EVENT DATE: 20160923
